FAERS Safety Report 4432962-0 (Version None)
Quarter: 2004Q3

REPORT INFORMATION
  Report Type: 
  Country: None (occurrence: None)
  Receive Date: 20040823
  Receipt Date: 20040811
  Transmission Date: 20050211
  Serious: Yes (Hospitalization)
  Sender: FDA-Public Use
  Company Number: 2004CG01609

PATIENT
  Age: 40 Year
  Sex: Female

DRUGS (19)
  1. OMEPRAZOLE [Suspect]
     Dosage: 20 MG DAILY PO
     Route: 048
  2. COLISTIN SULFATE [Suspect]
  3. NEBCIN [Suspect]
     Indication: PROTEUS INFECTION
     Dates: start: 20030301
  4. NEBCIN [Suspect]
     Indication: PROTEUS INFECTION
     Dates: start: 20030424, end: 20030515
  5. CEFTAZIDIME SODIUM [Suspect]
     Indication: PROTEUS INFECTION
     Dates: start: 20030301
  6. CEFTAZIDIME SODIUM [Suspect]
     Indication: PROTEUS INFECTION
     Dates: start: 20030424, end: 20030515
  7. LASIX [Suspect]
     Dosage: 40 MG DAILY PO
     Route: 048
  8. ALUMINUM HYDROXIDE AND MAGNESIUM TRISILICATE [Suspect]
  9. ACTRAPID HUMAN [Suspect]
     Dosage: 50 IU DAILY
  10. INSULATARD NPH HUMAN [Suspect]
     Dosage: 20 IU HS
  11. CREON [Suspect]
     Dosage: 12000 IU QID
  12. CREON [Suspect]
     Dosage: 25000 IU QID
  13. EUCALCIC [Suspect]
     Dosage: 2 DF DAILY
  14. UN-ALFA [Suspect]
     Dosage: 0.25  UG DAILY
  15. CORTANCYL [Suspect]
     Dosage: 20 MG DAILY
  16. PROGRAF [Suspect]
     Dosage: 3 MG BID
  17. CELLCEPT [Suspect]
     Dosage: 750 MG DAILY
  18. VFEND [Suspect]
     Dosage: 6 DF DAILY
  19. NEORECORMON   ROCHE [Suspect]
     Dosage: 3000 IU TIWK

REACTIONS (14)
  - BIOPSY KIDNEY ABNORMAL [None]
  - DIALYSIS [None]
  - DIAPHRAGMATIC PARALYSIS [None]
  - DYSPNOEA EXERTIONAL [None]
  - HAEMOTHORAX [None]
  - LUNG TRANSPLANT [None]
  - POST PROCEDURAL COMPLICATION [None]
  - PSEUDOMONAS INFECTION [None]
  - RENAL FAILURE ACUTE [None]
  - RENAL TUBULAR NECROSIS [None]
  - RESPIRATORY FAILURE [None]
  - SHOCK HAEMORRHAGIC [None]
  - SPUTUM PURULENT [None]
  - WEIGHT INCREASED [None]
